FAERS Safety Report 13003787 (Version 11)
Quarter: 2017Q3

REPORT INFORMATION
  Report Type: Report from Study
  Country: CA (occurrence: CA)
  Receive Date: 20161206
  Receipt Date: 20170811
  Transmission Date: 20171127
  Serious: Yes (Hospitalization)
  Sender: FDA-Public Use
  Company Number: PHHY2016CA149013

PATIENT
  Age: 61 Year
  Sex: Male

DRUGS (4)
  1. SANDOSTATIN LAR DEPOT [Suspect]
     Active Substance: OCTREOTIDE ACETATE
     Indication: METASTATIC CARCINOID TUMOUR
     Dosage: 30 MG, QMO (EVERY 4 WEEKS)
     Route: 030
     Dates: start: 20161027
  2. METOPROLOL. [Suspect]
     Active Substance: METOPROLOL
     Indication: PRODUCT USED FOR UNKNOWN INDICATION
     Dosage: TID FOR 1 DAY
     Route: 048
  3. SANDOSTATIN [Suspect]
     Active Substance: OCTREOTIDE ACETATE
     Indication: METASTATIC CARCINOID TUMOUR
     Dosage: 100 UG, TID FOR ONE WEEK
     Route: 058
     Dates: start: 20161020, end: 20161020
  4. JARDIANCE [Concomitant]
     Active Substance: EMPAGLIFLOZIN
     Indication: PRODUCT USED FOR UNKNOWN INDICATION
     Dosage: 10 MG, (DAY BEFORE THE INJECTION)
     Route: 048
     Dates: start: 20170802

REACTIONS (11)
  - Abnormal faeces [Recovered/Resolved]
  - Injection site pain [Unknown]
  - Pyrexia [Recovered/Resolved]
  - Haemorrhage [Unknown]
  - Sepsis [Recovered/Resolved]
  - Malaise [Recovered/Resolved]
  - Pyrexia [Recovered/Resolved]
  - Faeces hard [Unknown]
  - Blood glucose decreased [Unknown]
  - Hyperglycaemia [Unknown]
  - Anaemia [Unknown]

NARRATIVE: CASE EVENT DATE: 201610
